FAERS Safety Report 10913555 (Version 1)
Quarter: 2015Q1

REPORT INFORMATION
  Report Type: Spontaneous
  Country: US (occurrence: None)
  Receive Date: 20150311
  Receipt Date: 20150311
  Transmission Date: 20150721
  Serious: Yes (Life-Threatening, Hospitalization, Disabling, Other)
  Sender: FDA-Public Use
  Company Number: None

PATIENT
  Age: 45 Year
  Sex: Female
  Weight: 80.29 kg

DRUGS (6)
  1. GARLIC. [Concomitant]
     Active Substance: GARLIC
  2. MORPHINE [Suspect]
     Active Substance: MORPHINE
     Indication: DRUG PRESCRIBING ERROR
     Route: 042
     Dates: start: 20150211, end: 20150211
  3. ALBUTERAL INHALER [Concomitant]
  4. BIOTIN [Concomitant]
     Active Substance: BIOTIN
  5. VITAMIN C [Concomitant]
     Active Substance: ASCORBIC ACID
  6. VITAMIN B12 [Concomitant]
     Active Substance: CYANOCOBALAMIN

REACTIONS (21)
  - Weight increased [None]
  - Vision blurred [None]
  - Feeling hot [None]
  - Burning sensation [None]
  - Paralysis [None]
  - Peripheral swelling [None]
  - Abdominal pain [None]
  - Cough [None]
  - Urine output decreased [None]
  - Trismus [None]
  - Metabolic disorder [None]
  - Immobile [None]
  - Anger [None]
  - Formication [None]
  - Constipation [None]
  - Confusional state [None]
  - Rash [None]
  - Pruritus [None]
  - Headache [None]
  - Dysuria [None]
  - Somnolence [None]

NARRATIVE: CASE EVENT DATE: 20150211
